FAERS Safety Report 23338378 (Version 1)
Quarter: 2023Q4

REPORT INFORMATION
  Report Type: Spontaneous
  Country: US (occurrence: None)
  Receive Date: 20231222
  Receipt Date: 20231222
  Transmission Date: 20240109
  Serious: Yes (Other)
  Sender: FDA-Public Use
  Company Number: None

PATIENT
  Age: 65 Year
  Sex: Female

DRUGS (14)
  1. AMBRISENTAN [Suspect]
     Active Substance: AMBRISENTAN
     Indication: Pulmonary hypertension
     Dosage: FREQUENCY : DAILY;?
     Route: 048
     Dates: start: 20230918, end: 20231009
  2. SILDENAFIL [Suspect]
     Active Substance: SILDENAFIL
  3. FUROSEMIDE [Concomitant]
     Active Substance: FUROSEMIDE
  4. POTASSIUM CHLORIDE [Concomitant]
     Active Substance: POTASSIUM CHLORIDE
  5. DABIGATRAN [Concomitant]
     Active Substance: DABIGATRAN
  6. ALBUTERNOL HFA [Concomitant]
  7. MEOLAZONE [Concomitant]
  8. ALLOPURINOL [Concomitant]
     Active Substance: ALLOPURINOL
  9. FULL SPECTRUM B-VITAMIN C [Concomitant]
  10. METOPROLOL [Concomitant]
     Active Substance: METOPROLOL
  11. LOVASTATIN [Concomitant]
     Active Substance: LOVASTATIN
  12. GLIPIZIDE [Concomitant]
     Active Substance: GLIPIZIDE
  13. LORATADINE [Concomitant]
     Active Substance: LORATADINE
  14. FLONASE [Concomitant]
     Active Substance: FLUTICASONE PROPIONATE

REACTIONS (3)
  - Drug intolerance [None]
  - Oedema peripheral [None]
  - Cough [None]

NARRATIVE: CASE EVENT DATE: 20231009
